FAERS Safety Report 6233336-2 (Version None)
Quarter: 2009Q2

REPORT INFORMATION
  Report Type: 
  Country: None (occurrence: None)
  Receive Date: 20090617
  Receipt Date: 20090608
  Transmission Date: 20091009
  Serious: Yes (Hospitalization)
  Sender: FDA-Public Use
  Company Number: TW-ASTRAZENECA-2009SE02126

PATIENT
  Age: 70 Year
  Sex: Female

DRUGS (12)
  1. CRESTOR [Suspect]
     Indication: HYPERCHOLESTEROLAEMIA
     Route: 048
     Dates: start: 20090201, end: 20090508
  2. CRESTOR [Suspect]
     Route: 048
     Dates: start: 20090517, end: 20090520
  3. REMERON [Concomitant]
     Indication: INSOMNIA
     Dosage: HS, AT BEDTIME
     Route: 048
     Dates: start: 20090515
  4. ZOLPIDEM TARTRATE [Concomitant]
     Indication: INSOMNIA
     Dosage: HS, AT BEDTIME
     Route: 048
     Dates: start: 20090515
  5. DILATREND [Concomitant]
     Indication: CARDIOVASCULAR DISORDER
     Dosage: BID, TWICE A DAY
     Route: 048
     Dates: start: 20090515
  6. THYROXIN [Concomitant]
     Indication: HEPATITIS C ANTIBODY POSITIVE
     Dosage: QD, EVERY DAY
     Route: 048
     Dates: start: 20090515
  7. PLAVIX [Concomitant]
     Indication: CARDIOVASCULAR DISORDER
     Dosage: BID, TWICE A DAY
     Route: 048
     Dates: start: 20090515
  8. ALLUPURINAL [Concomitant]
     Indication: CARDIOVASCULAR DISORDER
     Dosage: QD, EVERY DAY
     Route: 048
     Dates: start: 20090515
  9. ASPIRIN [Concomitant]
     Indication: CARDIOVASCULAR DISORDER
     Dosage: QD, EVERY DAY
     Route: 048
     Dates: start: 20090515
  10. HUMALOG [Concomitant]
     Indication: DIABETES MELLITUS
     Dosage: QD, EVERY DAY
     Route: 030
     Dates: start: 20090515
  11. COXINE [Concomitant]
     Indication: CARDIAC FAILURE CHRONIC
     Dosage: QD, EVERY DAY
     Route: 048
     Dates: start: 20090515
  12. URETROPIC [Concomitant]
     Indication: HYPERTENSION
     Dosage: QD, EVERY DAY
     Route: 048
     Dates: start: 20090515

REACTIONS (2)
  - CARDIAC FAILURE [None]
  - RHABDOMYOLYSIS [None]
